FAERS Safety Report 19071820 (Version 1)
Quarter: 2021Q1

REPORT INFORMATION
  Report Type: Spontaneous
  Country: US (occurrence: US)
  Receive Date: 20210330
  Receipt Date: 20210330
  Transmission Date: 20210420
  Serious: No
  Sender: FDA-Public Use
  Company Number: US-009507513-2103USA005852

PATIENT
  Age: 74 Year
  Sex: Male

DRUGS (2)
  1. CANCIDAS [Suspect]
     Active Substance: CASPOFUNGIN ACETATE
     Indication: ANTIFUNGAL PROPHYLAXIS
     Dosage: UNK
  2. DECITABINE. [Concomitant]
     Active Substance: DECITABINE
     Dosage: UNK

REACTIONS (1)
  - Off label use [Unknown]
